FAERS Safety Report 21343565 (Version 1)
Quarter: 2022Q3

REPORT INFORMATION
  Report Type: Spontaneous
  Country: RU (occurrence: None)
  Receive Date: 20220916
  Receipt Date: 20220916
  Transmission Date: 20221027
  Serious: Yes (Other)
  Sender: FDA-Public Use
  Company Number: RU-ROCHE-3180528

PATIENT
  Age: 53 Year
  Sex: Male

DRUGS (4)
  1. MABTHERA [Suspect]
     Active Substance: RITUXIMAB
     Indication: B-cell lymphoma
     Route: 065
  2. MABTHERA [Suspect]
     Active Substance: RITUXIMAB
     Indication: Chronic lymphocytic leukaemia
  3. OBINUTUZUMAB [Suspect]
     Active Substance: OBINUTUZUMAB
     Indication: B-cell lymphoma
     Route: 042
  4. OBINUTUZUMAB [Suspect]
     Active Substance: OBINUTUZUMAB
     Indication: Chronic lymphocytic leukaemia

REACTIONS (5)
  - Neutropenia [Unknown]
  - Cytopenia [Unknown]
  - Off label use [Unknown]
  - Bone marrow infiltration [Unknown]
  - Blood product transfusion dependent [Unknown]
